FAERS Safety Report 6959517-8 (Version None)
Quarter: 2010Q3

REPORT INFORMATION
  Report Type: 
  Country: None (occurrence: None)
  Receive Date: 20100831
  Receipt Date: 20100827
  Transmission Date: 20110219
  Serious: Yes (Hospitalization)
  Sender: FDA-Public Use
  Company Number: FR-BRISTOL-MYERS SQUIBB COMPANY-15259740

PATIENT
  Age: 73 Year
  Sex: Male

DRUGS (6)
  1. APROVEL TABS [Suspect]
     Dates: start: 20091112, end: 20091222
  2. EXFORGE [Suspect]
     Dosage: STOPPED ON 22-DEC-2009
     Dates: start: 20091222, end: 20100505
  3. CANDESARTAN CILEXETIL/HYDROCHLOROTHIAZIDE (ATACAND HCT) [Suspect]
     Dates: end: 20091112
  4. PLAVIX [Concomitant]
  5. TANAKAN [Concomitant]
     Dosage: TAKING FROM NUMEROUS YEARS
  6. FENOFIBRATE [Concomitant]
     Dosage: TAKING FROM 1 YEAR

REACTIONS (2)
  - DERMATITIS EXFOLIATIVE [None]
  - ECZEMA [None]
